FAERS Safety Report 4358063-8 (Version None)
Quarter: 2004Q2

REPORT INFORMATION
  Report Type: 
  Country: None (occurrence: None)
  Receive Date: 20040510
  Receipt Date: 20040427
  Transmission Date: 20050107
  Serious: Yes (Death, Hospitalization)
  Sender: FDA-Public Use
  Company Number: 04P-163-0252266-00

PATIENT
  Age: 76 Year
  Sex: Female
  Weight: 75.2971 kg

DRUGS (1)
  1. HUMIRA [Suspect]
     Indication: RHEUMATOID ARTHRITIS
     Dosage: 40 MG, 1 IN 2 WK, SUBCUTANEOUS
     Route: 058
     Dates: start: 20030724, end: 20031025

REACTIONS (2)
  - MENTAL STATUS CHANGES [None]
  - UROSEPSIS [None]
